FAERS Safety Report 6970174-7 (Version None)
Quarter: 2010Q3

REPORT INFORMATION
  Report Type: 
  Country: None (occurrence: None)
  Receive Date: 20100908
  Receipt Date: 20100817
  Transmission Date: 20110219
  Serious: Yes (Hospitalization)
  Sender: FDA-Public Use
  Company Number: US-BAYER-200938772NA

PATIENT
  Age: 39 Year
  Sex: Female
  Weight: 52 kg

DRUGS (4)
  1. YASMIN [Suspect]
     Indication: PRODUCT USED FOR UNKNOWN INDICATION
  2. ZOLOFT [Concomitant]
  3. XANAX [Concomitant]
  4. VITAMINS [Concomitant]

REACTIONS (5)
  - DYSARTHRIA [None]
  - HEADACHE [None]
  - ISCHAEMIC CEREBRAL INFARCTION [None]
  - MOBILITY DECREASED [None]
  - NEUROLOGICAL SYMPTOM [None]
